FAERS Safety Report 9004362 (Version 1)
Quarter: 2013Q1

REPORT INFORMATION
  Report Type: Spontaneous
  Country: TR (occurrence: TR)
  Receive Date: 20130108
  Receipt Date: 20130108
  Transmission Date: 20140127
  Serious: Yes (Other)
  Sender: FDA-Public Use
  Company Number: TR-ASTELLAS-2013EU000040

PATIENT
  Sex: Female

DRUGS (2)
  1. TACROLIMUS SYSTEMIC [Suspect]
     Indication: RENAL TRANSPLANT
     Dosage: UNK
     Route: 065
  2. AZATHIOPRINE [Concomitant]
     Indication: RENAL TRANSPLANT
     Dosage: UNK
     Route: 065

REACTIONS (2)
  - Exposure during pregnancy [Unknown]
  - Premature rupture of membranes [Unknown]
